FAERS Safety Report 20511033 (Version 1)
Quarter: 2022Q1

REPORT INFORMATION
  Report Type: Other
  Country: CA (occurrence: CA)
  Receive Date: 20220224
  Receipt Date: 20220224
  Transmission Date: 20220423
  Serious: Yes (Other)
  Sender: FDA-Public Use
  Company Number: CA-APOTEX-2022AP003597

PATIENT
  Sex: Male

DRUGS (2)
  1. DILTIAZEM [Interacting]
     Active Substance: DILTIAZEM
     Indication: Cardiac discomfort
     Dosage: UNK
     Route: 065
  2. LYNPARZA [Interacting]
     Active Substance: OLAPARIB
     Indication: Prostate cancer
     Dosage: 300 MILLIGRAM, BID
     Route: 048

REACTIONS (1)
  - Drug interaction [Unknown]
